APPROVED DRUG PRODUCT: IBUPROFEN
Active Ingredient: IBUPROFEN
Strength: 200MG
Dosage Form/Route: TABLET;ORAL
Application: A072299 | Product #001
Applicant: ADAPTIS PHARMA PRIVATE LTD
Approved: Jul 1, 1988 | RLD: No | RS: No | Type: OTC